FAERS Safety Report 9707159 (Version 1)
Quarter: 2013Q4

REPORT INFORMATION
  Report Type: Spontaneous
  Country: US (occurrence: None)
  Receive Date: 20131122
  Receipt Date: 20131122
  Transmission Date: 20140711
  Serious: No
  Sender: FDA-Public Use
  Company Number: None

PATIENT
  Age: 89 Year
  Sex: Male

DRUGS (1)
  1. LATANOPROST [Suspect]
     Dosage: 2.5ML.

REACTIONS (2)
  - Visual impairment [None]
  - Product substitution issue [None]
